FAERS Safety Report 18867195 (Version 1)
Quarter: 2021Q1

REPORT INFORMATION
  Report Type: Spontaneous
  Country: US (occurrence: US)
  Receive Date: 20210209
  Receipt Date: 20210209
  Transmission Date: 20210420
  Serious: Yes (Other)
  Sender: FDA-Public Use
  Company Number: US-PURDUE-USA-2020-0158378

PATIENT
  Sex: Female

DRUGS (4)
  1. OXYCODONE/ ACETAMINOPHEN TABLETS [Suspect]
     Active Substance: ACETAMINOPHEN\OXYCODONE HYDROCHLORIDE
     Indication: LIMB INJURY
     Dosage: UNK
     Route: 048
  2. OXYCODONE HCL TABLETS (RHODES 91?490) [Suspect]
     Active Substance: OXYCODONE HYDROCHLORIDE
     Indication: LIMB INJURY
     Dosage: UNK
     Route: 048
  3. OXYCONTIN [Suspect]
     Active Substance: OXYCODONE HYDROCHLORIDE
     Indication: LIMB INJURY
     Dosage: UNK
     Route: 048
  4. NORCO [Suspect]
     Active Substance: ACETAMINOPHEN\HYDROCODONE BITARTRATE
     Indication: LIMB INJURY
     Dosage: UNK
     Route: 065

REACTIONS (11)
  - Fall [Unknown]
  - Drug dependence [Unknown]
  - Surgery [Unknown]
  - Complex regional pain syndrome [Unknown]
  - Depression [Unknown]
  - Stress [Unknown]
  - Vomiting [Unknown]
  - Anxiety [Unknown]
  - Nausea [Unknown]
  - Frustration tolerance decreased [Unknown]
  - Overdose [Unknown]
